FAERS Safety Report 23483152 (Version 1)
Quarter: 2024Q1

REPORT INFORMATION
  Report Type: Spontaneous
  Country: US (occurrence: US)
  Receive Date: 20240205
  Receipt Date: 20240205
  Transmission Date: 20240410
  Serious: No
  Sender: FDA-Public Use
  Company Number: US-PFIZER INC-202400030093

PATIENT
  Age: 50 Year
  Sex: Male

DRUGS (4)
  1. PAXLOVID [Suspect]
     Active Substance: NIRMATRELVIR\RITONAVIR
     Indication: COVID-19 treatment
     Dosage: UNK
     Dates: start: 20240119, end: 20240123
  2. BENZONATATE [Concomitant]
     Active Substance: BENZONATATE
     Dosage: MANUFACTURER: EPIC
     Dates: start: 20240118, end: 20240123
  3. FLUTICASONE [Concomitant]
     Active Substance: FLUTICASONE
     Dosage: MANUFACTURER: APOTEX
     Dates: start: 20240118, end: 20240131
  4. CLARITIN [Concomitant]
     Active Substance: LORATADINE
     Indication: Asthma
     Dosage: UNK, DAILY

REACTIONS (2)
  - COVID-19 [Not Recovered/Not Resolved]
  - Disease recurrence [Not Recovered/Not Resolved]

NARRATIVE: CASE EVENT DATE: 20240126
